FAERS Safety Report 4284689-6 (Version None)
Quarter: 2004Q1

REPORT INFORMATION
  Report Type: 
  Country: None (occurrence: None)
  Receive Date: 20040130
  Receipt Date: 20040123
  Transmission Date: 20041129
  Serious: Yes (Hospitalization)
  Sender: FDA-Public Use
  Company Number: K200301896

PATIENT
  Age: 80 Year
  Sex: Male

DRUGS (7)
  1. ALTACE [Suspect]
     Dates: start: 20010715
  2. PERTUZUMAB () 840MG [Suspect]
     Indication: PROSTATE CANCER
     Dosage: 840 MG, SINGLE, INTRAVENOUS
     Route: 042
     Dates: start: 20031117, end: 20031117
  3. GLYBURIDE [Suspect]
     Dosage: ORAL
     Route: 048
     Dates: start: 19980215, end: 20031116
  4. METFORMIN HCL [Suspect]
     Dates: start: 19980215
  5. ASPIRIN [Suspect]
     Dates: start: 19980215
  6. TAMSULOSIN HYDROCHLORIDE (TAMSULOSIN HYDROCHLORIDE) [Suspect]
     Dates: start: 20000215
  7. ATORVASTATIN CALCIUM [Suspect]
     Dates: start: 20010315

REACTIONS (5)
  - ANAEMIA [None]
  - CONFUSIONAL STATE [None]
  - DIPLOPIA [None]
  - HYPOGLYCAEMIA [None]
  - LOSS OF CONSCIOUSNESS [None]
